FAERS Safety Report 4997435-5 (Version None)
Quarter: 2006Q2

REPORT INFORMATION
  Report Type: 
  Country: None (occurrence: None)
  Receive Date: 20060509
  Receipt Date: 20060126
  Transmission Date: 20061013
  Serious: Yes (Hospitalization)
  Sender: FDA-Public Use
  Company Number: US-MERCK-0601USA03569

PATIENT
  Age: 60 Year
  Sex: Female
  Weight: 61 kg

DRUGS (16)
  1. VIOXX [Suspect]
     Indication: ARTHRITIS
     Route: 048
     Dates: start: 20000329, end: 20040301
  2. COZAAR [Concomitant]
     Indication: HYPERTENSION
     Route: 048
     Dates: start: 20011101
  3. CARDIZEM [Concomitant]
     Indication: CARDIAC DISORDER
     Route: 065
     Dates: start: 20000101
  4. HYDROCHLOROTHIAZIDE [Concomitant]
     Indication: HYPERTENSION
     Route: 065
  5. ASPIRIN [Concomitant]
     Indication: PROPHYLAXIS
     Route: 048
     Dates: start: 19990101
  6. MOTRIN [Concomitant]
     Route: 065
     Dates: end: 20020207
  7. TRAMADOL HYDROCHLORIDE [Concomitant]
     Indication: PAIN
     Route: 065
  8. QUININE SULFATE [Concomitant]
     Indication: MYALGIA
     Route: 065
     Dates: start: 20010205
  9. IBUPROFEN [Concomitant]
     Indication: PAIN
     Route: 065
     Dates: start: 20010108
  10. ULTRAM [Concomitant]
     Route: 065
     Dates: start: 20010401
  11. PREMARIN [Concomitant]
     Indication: HORMONE THERAPY
     Route: 065
     Dates: start: 19640101
  12. LEVOTHYROXINE SODIUM [Concomitant]
     Indication: THYROID DISORDER
     Route: 065
     Dates: start: 20010113
  13. PHENOBARBITAL [Concomitant]
     Route: 065
  14. MACRODANTIN [Concomitant]
     Indication: BACTERIAL INFECTION
     Route: 065
  15. PREVACID [Concomitant]
     Indication: GASTROOESOPHAGEAL REFLUX DISEASE
     Route: 065
  16. FOSAMAX [Concomitant]
     Indication: OSTEOPOROSIS
     Route: 048

REACTIONS (7)
  - ABDOMINAL PAIN [None]
  - BACTERIAL INFECTION [None]
  - CEREBROVASCULAR ACCIDENT [None]
  - GASTROOESOPHAGEAL REFLUX DISEASE [None]
  - HYPERTENSION [None]
  - INTESTINAL OBSTRUCTION [None]
  - MYOCARDIAL INFARCTION [None]
